FAERS Safety Report 5420023-3 (Version None)
Quarter: 2007Q3

REPORT INFORMATION
  Report Type: 
  Country: None (occurrence: None)
  Receive Date: 20070815
  Receipt Date: 20070807
  Transmission Date: 20080115
  Serious: Yes (Hospitalization)
  Sender: FDA-Public Use
  Company Number: 159530ISR

PATIENT
  Age: 12 Year
  Sex: Female

DRUGS (5)
  1. VINCRISTINE [Suspect]
     Indication: ACUTE LYMPHOCYTIC LEUKAEMIA
     Dosage: 2.5 MG (1 MG/ML- CYCLICAL); INTRAVENOUS (NO OTHERWISE  SPECIFIED)
     Route: 042
     Dates: start: 20070621, end: 20070716
  2. ASPARAGINASE [Suspect]
     Indication: ACUTE LYMPHOCYTIC LEUKAEMIA
  3. PREDNISONE TAB [Concomitant]
  4. DAUNORUBICIN HCL [Concomitant]
  5. METHYLPREDNISOLONE 16MG TAB [Concomitant]

REACTIONS (5)
  - BLOOD OSMOLARITY DECREASED [None]
  - CHOLELITHIASIS [None]
  - HEPATOMEGALY [None]
  - HYPONATRAEMIA [None]
  - PANCREATITIS ACUTE [None]
